FAERS Safety Report 25648320 (Version 1)
Quarter: 2025Q3

REPORT INFORMATION
  Report Type: Report from Study
  Country: US (occurrence: US)
  Receive Date: 20250806
  Receipt Date: 20250806
  Transmission Date: 20251020
  Serious: No
  Sender: SUNOVION
  Company Number: US-SUMITOMO PHARMA SWITZERLAND GMBH-2025SPA009776

PATIENT
  Age: 84 Year
  Sex: Male

DRUGS (15)
  1. ORGOVYX [Suspect]
     Active Substance: RELUGOLIX
     Indication: Prostate cancer
     Route: 048
     Dates: start: 20250703, end: 20250703
  2. ORGOVYX [Suspect]
     Active Substance: RELUGOLIX
     Route: 048
  3. COENZYME Q10 [Concomitant]
     Active Substance: DIETARY SUPPLEMENT\UBIDECARENONE
  4. FISH OIL [Concomitant]
     Active Substance: FISH OIL
  5. FLAXSEED [Concomitant]
     Active Substance: FLAX SEED
  6. FLECAINIDE ACETATE [Concomitant]
     Active Substance: FLECAINIDE ACETATE
  7. IRBESARTAN [Concomitant]
     Active Substance: IRBESARTAN
  8. MAGNESIUM [Concomitant]
     Active Substance: MAGNESIUM
  9. DIETARY SUPPLEMENT\HERBALS\MILK THISTLE [Concomitant]
     Active Substance: MILK THISTLE
  10. MIRALAX [Concomitant]
     Active Substance: POLYETHYLENE GLYCOL 3350
  11. HERBALS\SAW PALMETTO [Concomitant]
     Active Substance: HERBALS\SAW PALMETTO
  12. VITAMIN C [Concomitant]
     Active Substance: ASCORBIC ACID
     Route: 048
  13. VITAMIN D3 [Concomitant]
     Active Substance: CHOLECALCIFEROL
  14. WARFARIN SODIUM [Concomitant]
     Active Substance: WARFARIN SODIUM
  15. ZINC SULFATE HEPTAHYDRATE [Concomitant]
     Active Substance: ZINC SULFATE HEPTAHYDRATE

REACTIONS (2)
  - Diarrhoea [Unknown]
  - Constipation [Unknown]

NARRATIVE: CASE EVENT DATE: 20250701
